FAERS Safety Report 12632955 (Version 3)
Quarter: 2016Q3

REPORT INFORMATION
  Report Type: Spontaneous
  Country: US (occurrence: US)
  Receive Date: 20160808
  Receipt Date: 20160808
  Transmission Date: 20161109
  Serious: No
  Sender: FDA-Public Use
  Company Number: US-BEH-2016057752

PATIENT
  Sex: Female
  Weight: 60 kg

DRUGS (10)
  1. HIZENTRA [Suspect]
     Active Substance: HUMAN IMMUNOGLOBULIN G
     Route: 058
  2. CALCIUM [Concomitant]
     Active Substance: CALCIUM
  3. ACETAMINOPHEN. [Concomitant]
     Active Substance: ACETAMINOPHEN
  4. SINGULAIR [Concomitant]
     Active Substance: MONTELUKAST SODIUM
  5. DIPHENHYDRAMINE. [Concomitant]
     Active Substance: DIPHENHYDRAMINE
  6. PREDNISONE. [Concomitant]
     Active Substance: PREDNISONE
  7. NASONEX [Concomitant]
     Active Substance: MOMETASONE FUROATE
  8. EPIPEN [Concomitant]
     Active Substance: EPINEPHRINE
  9. LIDOCAINE. [Concomitant]
     Active Substance: LIDOCAINE
  10. FOSAMAX [Concomitant]
     Active Substance: ALENDRONATE SODIUM

REACTIONS (1)
  - Sinusitis [Unknown]
